FAERS Safety Report 5526731-8 (Version None)
Quarter: 2007Q4

REPORT INFORMATION
  Report Type: 
  Country: None (occurrence: None)
  Receive Date: 20071127
  Receipt Date: 20071123
  Transmission Date: 20080405
  Serious: Yes (Hospitalization, Other)
  Sender: FDA-Public Use
  Company Number: CA-MERCK-0711CAN00132

PATIENT
  Age: 56 Year
  Sex: Male

DRUGS (3)
  1. COZAAR [Suspect]
     Indication: HYPERTENSION
     Route: 048
     Dates: start: 20060404, end: 20060508
  2. COZAAR [Suspect]
     Route: 048
     Dates: start: 20060509
  3. PHENYTOIN [Concomitant]
     Indication: CONVULSION
     Route: 065
     Dates: start: 19980101

REACTIONS (2)
  - GASTROINTESTINAL DISORDER [None]
  - PERIPHERAL REVASCULARISATION [None]
